FAERS Safety Report 4386494-9 (Version None)
Quarter: 2004Q2

REPORT INFORMATION
  Report Type: 
  Country: None (occurrence: None)
  Receive Date: 20040623
  Receipt Date: 20040611
  Transmission Date: 20050107
  Serious: Yes (Other)
  Sender: FDA-Public Use
  Company Number: US-JNJFOC-20040603607

PATIENT
  Age: 33 Year
  Sex: Female
  Weight: 63.5036 kg

DRUGS (13)
  1. REMICADE [Suspect]
     Indication: RHEUMATOID ARTHRITIS
     Dosage: INTRAVENOUS
     Route: 042
     Dates: start: 20010101, end: 20030614
  2. REMICADE [Suspect]
     Indication: RHEUMATOID ARTHRITIS
     Dosage: INTRAVENOUS
     Route: 042
     Dates: start: 20040329, end: 20040603
  3. NEXIUM [Concomitant]
  4. CELEBREX [Concomitant]
  5. ZYRTEC [Concomitant]
  6. FOLIC ACID [Concomitant]
  7. ACTZ (ALL OTHER THERAPEUTIC PRODUCTS) [Concomitant]
  8. METHOTREXATE [Concomitant]
  9. BIRTH CONTROL PILLS (ORAL CONTRACEPTIVE NOS) [Concomitant]
  10. MULTIVITAMIN (MULTIVITAMINS) [Concomitant]
  11. POTASSIUM (POTASSIUM) [Concomitant]
  12. DIETHYLPROPION (AMFEPRAMONE HYDROCHLORIDE) [Concomitant]
  13. XENICAL [Concomitant]

REACTIONS (3)
  - BLOOD POTASSIUM DECREASED [None]
  - CARTILAGE INJURY [None]
  - WEIGHT INCREASED [None]
